FAERS Safety Report 19373421 (Version 1)
Quarter: 2021Q2

REPORT INFORMATION
  Report Type: Spontaneous
  Country: DE (occurrence: DE)
  Receive Date: 20210603
  Receipt Date: 20210603
  Transmission Date: 20210717
  Serious: Yes (Other)
  Sender: FDA-Public Use
  Company Number: DE-DSJP-DSE-2021-115710

PATIENT
  Sex: Female

DRUGS (4)
  1. TRASTUZUMAB DERUXTECAN. [Suspect]
     Active Substance: TRASTUZUMAB DERUXTECAN
     Indication: PRODUCT USED FOR UNKNOWN INDICATION
     Dosage: 5.4 MG/KG, CYCLIC (ONCE IN 21 DAYS CYCLE)
     Dates: start: 20210305, end: 20210305
  2. TRASTUZUMAB DERUXTECAN. [Suspect]
     Active Substance: TRASTUZUMAB DERUXTECAN
     Dosage: 5.4 MG/KG, CYCLIC (ONCE IN 21 DAYS CYCLE)
     Dates: start: 20210328, end: 20210328
  3. DEXAMETHASONE. [Concomitant]
     Active Substance: DEXAMETHASONE
     Indication: DECREASED APPETITE
     Dosage: 4 MG
  4. TRASTUZUMAB DERUXTECAN. [Suspect]
     Active Substance: TRASTUZUMAB DERUXTECAN
     Dosage: 5.4 MG/KG, CYCLIC (ONCE IN 21 DAYS CYCLE)
     Dates: start: 20210508, end: 20210508

REACTIONS (4)
  - Metastases to skin [Unknown]
  - Metastases to liver [Unknown]
  - Fatigue [Unknown]
  - Disease progression [Unknown]
